FAERS Safety Report 18085040 (Version 2)
Quarter: 2020Q3

REPORT INFORMATION
  Report Type: Report from Study
  Country: AR (occurrence: AR)
  Receive Date: 20200729
  Receipt Date: 20200816
  Transmission Date: 20201103
  Serious: Yes (Other)
  Sender: FDA-Public Use
  Company Number: NVSC2020AR210846

PATIENT
  Age: 50 Year
  Sex: Female

DRUGS (2)
  1. COSENTYX [Suspect]
     Active Substance: SECUKINUMAB
     Dosage: 300 MG, QMO
     Route: 058
  2. COSENTYX [Suspect]
     Active Substance: SECUKINUMAB
     Indication: ANKYLOSING SPONDYLITIS
     Dosage: 150 MG, QMO
     Route: 058
     Dates: start: 20181010

REACTIONS (9)
  - Vertebral lateral recess stenosis [Unknown]
  - Radiculopathy [Unknown]
  - Lumbar radiculopathy [Unknown]
  - Neuropathy peripheral [Recovering/Resolving]
  - Dural bleb [Unknown]
  - Intervertebral disc protrusion [Unknown]
  - Arthralgia [Recovering/Resolving]
  - Ankylosing spondylitis [Recovering/Resolving]
  - Drug ineffective [Recovering/Resolving]

NARRATIVE: CASE EVENT DATE: 202001
